FAERS Safety Report 12297435 (Version 4)
Quarter: 2016Q2

REPORT INFORMATION
  Report Type: Spontaneous
  Country: US (occurrence: US)
  Receive Date: 20160422
  Receipt Date: 20160526
  Transmission Date: 20160815
  Serious: Yes (Hospitalization, Other)
  Sender: FDA-Public Use
  Company Number: US-GLAXOSMITHKLINE-US2016056539

PATIENT
  Age: 74 Year
  Sex: Female

DRUGS (16)
  1. ADVAIR DISKUS [Suspect]
     Active Substance: FLUTICASONE PROPIONATE\SALMETEROL XINAFOATE
     Dosage: 250/50 MCG
  2. ATROVENT [Concomitant]
     Active Substance: IPRATROPIUM BROMIDE
  3. GABAPENTIN. [Concomitant]
     Active Substance: GABAPENTIN
  4. METOPROLOL. [Concomitant]
     Active Substance: METOPROLOL
  5. OXYGEN. [Concomitant]
     Active Substance: OXYGEN
     Dosage: 2 L, PRN
  6. PRADAXA [Concomitant]
     Active Substance: DABIGATRAN ETEXILATE MESYLATE
  7. SPIRIVA [Concomitant]
     Active Substance: TIOTROPIUM BROMIDE MONOHYDRATE
  8. ALBUTEROL. [Concomitant]
     Active Substance: ALBUTEROL
  9. LOSARTAN. [Concomitant]
     Active Substance: LOSARTAN
  10. TORADOL [Suspect]
     Active Substance: KETOROLAC TROMETHAMINE
     Indication: PRODUCT USED FOR UNKNOWN INDICATION
  11. ASPIRIN. [Concomitant]
     Active Substance: ASPIRIN
  12. CALCIUM [Concomitant]
     Active Substance: CALCIUM
  13. PRILOSEC [Concomitant]
     Active Substance: OMEPRAZOLE MAGNESIUM
  14. ADVAIR DISKUS [Suspect]
     Active Substance: FLUTICASONE PROPIONATE\SALMETEROL XINAFOATE
     Indication: CHRONIC OBSTRUCTIVE PULMONARY DISEASE
     Dosage: 1 PUFF(S), BID
     Route: 055
     Dates: start: 2006
  15. ATORVASTATIN [Concomitant]
     Active Substance: ATORVASTATIN
  16. ZOLOFT [Concomitant]
     Active Substance: SERTRALINE HYDROCHLORIDE

REACTIONS (6)
  - Hip fracture [Recovered/Resolved]
  - Nasal operation [Recovering/Resolving]
  - Drug hypersensitivity [Not Recovered/Not Resolved]
  - Nasal obstruction [Unknown]
  - Asthenia [Recovering/Resolving]
  - Fall [Unknown]

NARRATIVE: CASE EVENT DATE: 20160406
